FAERS Safety Report 7815321-X (Version None)
Quarter: 2011Q4

REPORT INFORMATION
  Report Type: 
  Country: None (occurrence: None)
  Receive Date: 20111014
  Receipt Date: 20111012
  Transmission Date: 20120403
  Serious: No
  Sender: FDA-Public Use
  Company Number: US-PFIZER INC-2011244855

PATIENT

DRUGS (1)
  1. TESSALON [Suspect]
     Indication: COUGH
     Dosage: 2 CAPSULES

REACTIONS (4)
  - CHILLS [None]
  - NAUSEA [None]
  - DYSPNOEA [None]
  - DRUG HYPERSENSITIVITY [None]
